FAERS Safety Report 18113706 (Version 1)
Quarter: 2020Q3

REPORT INFORMATION
  Report Type: Spontaneous
  Country: US (occurrence: US)
  Receive Date: 20200805
  Receipt Date: 20200805
  Transmission Date: 20201103
  Serious: No
  Sender: FDA-Public Use
  Company Number: None

PATIENT
  Age: 59 Year
  Sex: Male
  Weight: 92.25 kg

DRUGS (11)
  1. AMOXICILLIN 875MG [Suspect]
     Active Substance: AMOXICILLIN
     Indication: EAR INFECTION
     Dosage: ?          QUANTITY:14 TABLET(S);?
     Route: 048
  2. CARVEDILOL. [Concomitant]
     Active Substance: CARVEDILOL
  3. VITAMIN E [Concomitant]
     Active Substance: .ALPHA.-TOCOPHEROL
  4. HYDROCHLOROTHIAZIDE. [Concomitant]
     Active Substance: HYDROCHLOROTHIAZIDE
  5. CETIRIZINE [Suspect]
     Active Substance: CETIRIZINE HYDROCHLORIDE
     Indication: EAR PAIN
     Dosage: ?          QUANTITY:15 TABLET(S);?
  6. LOSARTIN [Concomitant]
     Active Substance: LOSARTAN
  7. FLUTICASONE 50MCG [Suspect]
     Active Substance: FLUTICASONE
  8. DILTIAZEM CD [Concomitant]
     Active Substance: DILTIAZEM
  9. VITAMIN C [Concomitant]
     Active Substance: ASCORBIC ACID
  10. VITAMIN D [Concomitant]
     Active Substance: VITAMIN D NOS
  11. FISH OIL [Concomitant]
     Active Substance: FISH OIL

REACTIONS (7)
  - Ear pruritus [None]
  - Dysphonia [None]
  - Dysphagia [None]
  - Sleep disorder [None]
  - Fatigue [None]
  - Dry throat [None]
  - Ear congestion [None]

NARRATIVE: CASE EVENT DATE: 20200723
